FAERS Safety Report 6848832-4 (Version None)
Quarter: 2010Q3

REPORT INFORMATION
  Report Type: 
  Country: None (occurrence: None)
  Receive Date: 20100716
  Receipt Date: 20070909
  Transmission Date: 20110219
  Serious: No
  Sender: FDA-Public Use
  Company Number: US-PFIZER INC-2007076130

PATIENT
  Sex: Male

DRUGS (2)
  1. CHANTIX [Suspect]
     Dates: start: 20070829
  2. ZOCOR [Concomitant]

REACTIONS (3)
  - ABNORMAL DREAMS [None]
  - MIDDLE INSOMNIA [None]
  - SLEEP DISORDER [None]
